FAERS Safety Report 22111365 (Version 1)
Quarter: 2023Q1

REPORT INFORMATION
  Report Type: Spontaneous
  Country: US (occurrence: None)
  Receive Date: 20230317
  Receipt Date: 20230317
  Transmission Date: 20230417
  Serious: No
  Sender: FDA-Public Use
  Company Number: 2023A056954

PATIENT
  Age: 27277 Day
  Sex: Male
  Weight: 68.9 kg

DRUGS (1)
  1. BYDUREON BCISE [Suspect]
     Active Substance: EXENATIDE
     Indication: Diabetes mellitus
     Dates: start: 2021

REACTIONS (3)
  - Injection site mass [Unknown]
  - Injection site haemorrhage [Unknown]
  - Device delivery system issue [Unknown]

NARRATIVE: CASE EVENT DATE: 20230306
